FAERS Safety Report 22325622 (Version 1)
Quarter: 2023Q2

REPORT INFORMATION
  Report Type: Spontaneous
  Country: US (occurrence: None)
  Receive Date: 20230516
  Receipt Date: 20230516
  Transmission Date: 20230721
  Serious: No
  Sender: FDA-Public Use
  Company Number: None

PATIENT

DRUGS (1)
  1. MOUNJARO [Suspect]
     Active Substance: TIRZEPATIDE

REACTIONS (4)
  - Malaise [None]
  - Product use issue [None]
  - Product availability issue [None]
  - Insurance issue [None]

NARRATIVE: CASE EVENT DATE: 20230315
